FAERS Safety Report 6294948-3 (Version None)
Quarter: 2009Q3

REPORT INFORMATION
  Report Type: 
  Country: None (occurrence: None)
  Receive Date: 20090731
  Receipt Date: 20090731
  Transmission Date: 20100115
  Serious: Yes (Life-Threatening, Hospitalization)
  Sender: FDA-Public Use
  Company Number: None

PATIENT
  Age: 18 Year
  Sex: Female
  Weight: 43.9989 kg

DRUGS (1)
  1. MIRENA [Suspect]
     Indication: CONTRACEPTION
     Dosage: INTRAUTERINE
     Route: 015
     Dates: start: 20070312, end: 20070621

REACTIONS (12)
  - ABDOMINAL PAIN [None]
  - ACTIVITIES OF DAILY LIVING IMPAIRED [None]
  - COMPLICATION OF DEVICE INSERTION [None]
  - FATIGUE [None]
  - HYPERHIDROSIS [None]
  - OVARIAN CYST [None]
  - SYNCOPE [None]
  - URINARY TRACT INFECTION [None]
  - UTERINE ABSCESS [None]
  - VAGINAL DISCHARGE [None]
  - VAGINAL HAEMORRHAGE [None]
  - WEIGHT DECREASED [None]
